FAERS Safety Report 7397598-0 (Version None)
Quarter: 2011Q2

REPORT INFORMATION
  Report Type: 
  Country: None (occurrence: None)
  Receive Date: 20110406
  Receipt Date: 20110331
  Transmission Date: 20111010
  Serious: Yes (Hospitalization)
  Sender: FDA-Public Use
  Company Number: JP-MERCK-1102USA00637

PATIENT
  Age: 85 Year
  Sex: Female

DRUGS (7)
  1. CALBLOCK [Concomitant]
     Route: 065
  2. ASPIRIN [Concomitant]
     Route: 065
  3. NIVADIL [Concomitant]
     Route: 065
  4. BIOFERMIN [Concomitant]
     Route: 065
  5. PEPCID RPD [Suspect]
     Route: 048
  6. ALDACTONE [Concomitant]
     Route: 048
  7. DIGOXIN [Suspect]
     Route: 048

REACTIONS (2)
  - TOXICITY TO VARIOUS AGENTS [None]
  - RENAL FAILURE ACUTE [None]
